FAERS Safety Report 20377036 (Version 6)
Quarter: 2022Q1

REPORT INFORMATION
  Report Type: Spontaneous
  Country: AT (occurrence: AT)
  Receive Date: 20220125
  Receipt Date: 20220309
  Transmission Date: 20220423
  Serious: Yes (Other)
  Sender: FDA-Public Use
  Company Number: AT-SA-2022SA017261

PATIENT

DRUGS (10)
  1. LIBTAYO [Suspect]
     Active Substance: CEMIPLIMAB-RWLC
     Indication: Malignant spinal cord compression
     Dosage: 350 MG, Q3W
     Route: 042
     Dates: start: 20210923
  2. LIBTAYO [Suspect]
     Active Substance: CEMIPLIMAB-RWLC
     Indication: Squamous cell carcinoma of skin
  3. EDOXABAN TOSYLATE [Concomitant]
     Active Substance: EDOXABAN TOSYLATE
     Indication: Atrial fibrillation
     Dosage: 60 MG, P.O.
     Dates: start: 20211228
  4. ALENDRONIC ACID [Concomitant]
     Active Substance: ALENDRONIC ACID
     Indication: Osteoporosis
     Dosage: 70 MG, QW, P.O.
  5. LISINOPRIL [Concomitant]
     Active Substance: LISINOPRIL
     Indication: Hypertension
     Dosage: 20 MG, QD, P.O.
     Route: 048
  6. LISINOPRIL [Concomitant]
     Active Substance: LISINOPRIL
     Indication: Cardiac failure
  7. LISINOPRIL [Concomitant]
     Active Substance: LISINOPRIL
     Indication: Respiratory rate increased
  8. SERTRALINE [Concomitant]
     Active Substance: SERTRALINE HYDROCHLORIDE
     Indication: Depression
     Dosage: 50 MG, QD
     Route: 048
  9. HENDRONIC [Concomitant]
     Indication: Osteoporosis
     Dosage: UNK
  10. BISOPROLOL FUMARATE [Concomitant]
     Active Substance: BISOPROLOL FUMARATE
     Indication: Sinus arrhythmia
     Dosage: 2.5 MG, QD
     Route: 048
     Dates: start: 202112

REACTIONS (7)
  - Atrial fibrillation [Unknown]
  - Cardiac failure [Recovered/Resolved]
  - Sinus arrhythmia [Unknown]
  - Brain natriuretic peptide increased [Unknown]
  - Asthenia [Unknown]
  - Eastern Cooperative Oncology Group performance status [Unknown]
  - Depression [Unknown]

NARRATIVE: CASE EVENT DATE: 20211228
